FAERS Safety Report 5153158-3 (Version None)
Quarter: 2006Q4

REPORT INFORMATION
  Report Type: 
  Country: None (occurrence: None)
  Receive Date: 20061117
  Receipt Date: 20061108
  Transmission Date: 20070319
  Serious: Yes (Hospitalization)
  Sender: FDA-Public Use
  Company Number: 2006PK02339

PATIENT
  Age: 93 Year
  Sex: Female

DRUGS (7)
  1. BELOC ZOK MITE [Interacting]
     Route: 048
     Dates: start: 20000101
  2. DIPIPERON [Suspect]
     Route: 048
     Dates: start: 20060919, end: 20060923
  3. RISPERDAL [Suspect]
     Route: 048
     Dates: start: 20060701
  4. ADALAT [Interacting]
     Route: 048
     Dates: start: 20000101
  5. ENAHEXAL [Concomitant]
     Route: 048
     Dates: start: 20000101
  6. FUROSEMIDE [Concomitant]
     Route: 048
     Dates: start: 20020101
  7. MELNEURIN [Concomitant]
     Route: 048
     Dates: start: 20060924, end: 20060929

REACTIONS (5)
  - CEREBRAL ATROPHY [None]
  - DEMYELINATION [None]
  - DRUG INTERACTION [None]
  - GRAND MAL CONVULSION [None]
  - VASCULAR ENCEPHALOPATHY [None]
